FAERS Safety Report 23213794 (Version 1)
Quarter: 2023Q4

REPORT INFORMATION
  Report Type: Report from Study
  Country: US (occurrence: US)
  Receive Date: 20231121
  Receipt Date: 20231121
  Transmission Date: 20240109
  Serious: Yes (Hospitalization, Other)
  Sender: FDA-Public Use
  Company Number: US-ABBVIE-5498076

PATIENT
  Sex: Female
  Weight: 96.161 kg

DRUGS (1)
  1. HUMIRA [Suspect]
     Active Substance: ADALIMUMAB
     Indication: Rheumatoid arthritis
     Dosage: FORM STRENGTH: 40 MILLIGRAM
     Route: 058
     Dates: start: 2016

REACTIONS (5)
  - Transient ischaemic attack [Unknown]
  - Pulmonary fibrosis [Not Recovered/Not Resolved]
  - Atrial fibrillation [Recovering/Resolving]
  - Hemiparesis [Unknown]
  - Constipation [Recovered/Resolved]

NARRATIVE: CASE EVENT DATE: 20170101
